FAERS Safety Report 9611569 (Version 3)
Quarter: 2014Q1

REPORT INFORMATION
  Report Type: Report from Study
  Country: JP (occurrence: JP)
  Receive Date: 20131010
  Receipt Date: 20140307
  Transmission Date: 20141002
  Serious: Yes (Hospitalization, Other)
  Sender: FDA-Public Use
  Company Number: PHHY2013JP112454

PATIENT
  Age: 36 Year
  Sex: Female
  Weight: 52 kg

DRUGS (14)
  1. FTY 720 [Suspect]
     Indication: MULTIPLE SCLEROSIS
     Dosage: 0.5 MG, QD
     Route: 048
     Dates: start: 20120829
  2. PREDNISOLONE [Concomitant]
     Indication: MULTIPLE SCLEROSIS
     Dosage: 60 MG, UNK
     Route: 048
     Dates: start: 20120811, end: 20120907
  3. PREDNISOLONE [Concomitant]
     Dosage: 40 MG, UNK
     Route: 048
     Dates: start: 20120811, end: 20120907
  4. PREDNISOLONE [Concomitant]
     Dosage: 20 MG, UNK
     Route: 048
     Dates: start: 20120811, end: 20120907
  5. FERO-GRADUMET [Concomitant]
     Indication: IRON DEFICIENCY ANAEMIA
     Dosage: 210 MG, UNK
     Route: 048
  6. GASTER D [Concomitant]
     Indication: PROPHYLAXIS
     Dosage: 20 MG, UNK
     Route: 048
  7. MUCOSTA [Concomitant]
     Indication: PROPHYLAXIS
     Dosage: 200 MG, UNK
     Route: 048
     Dates: end: 20120927
  8. BAKTAR [Concomitant]
     Indication: PROPHYLAXIS
     Route: 048
     Dates: end: 20120927
  9. GASMOTIN [Concomitant]
     Indication: CONSTIPATION
     Dosage: 15 MG, UNK
     Route: 048
     Dates: end: 20130716
  10. MIYA BM [Concomitant]
     Indication: CONSTIPATION
     Dosage: 3 G, UNK
     Route: 048
  11. BONALON [Concomitant]
     Indication: PROPHYLAXIS
     Route: 048
     Dates: end: 20120921
  12. BETANIS [Concomitant]
     Indication: NEUROGENIC BLADDER
     Dosage: 50 MG, UNK
     Route: 048
     Dates: start: 20120913, end: 20120919
  13. EBRANTIL [Concomitant]
     Indication: NEUROGENIC BLADDER
     Dosage: 30 MG, UNK
     Route: 048
  14. UBRETID [Concomitant]
     Indication: NEUROGENIC BLADDER
     Dosage: 5 MG, UNK
     Route: 048
     Dates: start: 20130314

REACTIONS (3)
  - Lymphocyte count decreased [Not Recovered/Not Resolved]
  - Blood pressure diastolic decreased [Recovered/Resolved]
  - Blood pressure systolic increased [Unknown]
